FAERS Safety Report 5208752-8 (Version None)
Quarter: 2007Q1

REPORT INFORMATION
  Report Type: 
  Country: None (occurrence: None)
  Receive Date: 20070116
  Receipt Date: 20070105
  Transmission Date: 20070707
  Serious: Yes (Hospitalization)
  Sender: FDA-Public Use
  Company Number: US-KINGPHARMUSA00001-K200601079

PATIENT

DRUGS (12)
  1. ALTACE [Suspect]
     Indication: ATRIAL FIBRILLATION
     Dosage: 2.5 MG, BID
     Route: 048
     Dates: end: 20060425
  2. ALTACE [Suspect]
     Dosage: 5 MG, BID
     Route: 048
     Dates: start: 20060426, end: 20060628
  3. FURIX [Suspect]
     Dosage: 40 MG, QD
     Dates: start: 20060401
  4. DALACIN [Suspect]
     Dosage: 300 MG, BID
     Dates: start: 20060601
  5. METOPROLOL SUCCINATE [Concomitant]
     Dosage: 50 MG, QD
     Dates: start: 20060401
  6. ENTOCORT [Concomitant]
     Dosage: 9 MG, QD
     Route: 048
  7. ISOPTIN [Concomitant]
     Dosage: 120 MG, QD
     Dates: start: 20060401
  8. BEHEPAN [Concomitant]
     Dosage: 2 MG, QD
     Route: 048
  9. PREDNISOLONE ^PHARMACIA + UPJOHN^ [Concomitant]
  10. ALLOPURINOL [Concomitant]
     Dosage: 300 MG, QD
  11. SPIRONOLAKTON ^ACO^ [Concomitant]
     Dosage: 25 MG, QD
     Dates: start: 20060401
  12. IMODIUM [Concomitant]
     Dosage: UNK, PRN
     Route: 048

REACTIONS (21)
  - ATRIAL FLUTTER [None]
  - BLISTER [None]
  - BLOOD BLISTER [None]
  - BLOOD CREATININE INCREASED [None]
  - BLOOD PRESSURE DECREASED [None]
  - BLOOD UREA INCREASED [None]
  - C-REACTIVE PROTEIN INCREASED [None]
  - DIZZINESS [None]
  - DYSPNOEA [None]
  - FATIGUE [None]
  - NAUSEA [None]
  - PALLOR [None]
  - POLYNEUROPATHY [None]
  - PYREXIA [None]
  - RENAL FAILURE [None]
  - SEPSIS [None]
  - SKIN DISCOLOURATION [None]
  - SYNCOPE [None]
  - VASCULITIS [None]
  - VOMITING [None]
  - WHITE BLOOD CELL COUNT INCREASED [None]
